FAERS Safety Report 9373643 (Version 1)
Quarter: 2013Q2

REPORT INFORMATION
  Report Type: Report from Study
  Country: US (occurrence: US)
  Receive Date: 20130627
  Receipt Date: 20130627
  Transmission Date: 20140414
  Serious: Yes (Other)
  Sender: FDA-Public Use
  Company Number: US-RB-024246-09

PATIENT
  Age: 54 Year
  Sex: Male

DRUGS (3)
  1. SUBOXONE TABLET [Suspect]
     Indication: PRODUCT USED FOR UNKNOWN INDICATION
     Dosage: DOSING INFORMATION UNKNOWN
     Route: 065
  2. SUBUTEX [Suspect]
     Indication: PRODUCT USED FOR UNKNOWN INDICATION
     Dosage: DOSING DETAILS UNKNOWN
     Route: 065
  3. SUBUTEX [Suspect]
     Dosage: DOSING DETAILS UNKNOWN
     Route: 065

REACTIONS (5)
  - Sleep apnoea syndrome [Recovered/Resolved]
  - Pruritus [Recovered/Resolved]
  - Cyanosis [Recovered/Resolved]
  - Hypersensitivity [Recovered/Resolved]
  - Drug withdrawal syndrome [Recovered/Resolved]
